FAERS Safety Report 10133470 (Version 1)
Quarter: 2014Q2

REPORT INFORMATION
  Report Type: Spontaneous
  Country: KR (occurrence: KR)
  Receive Date: 20140428
  Receipt Date: 20140428
  Transmission Date: 20141212
  Serious: Yes (Other)
  Sender: FDA-Public Use
  Company Number: KR-ASTELLAS-2014JP003943AA

PATIENT
  Age: 96 Year
  Sex: Female

DRUGS (1)
  1. PROTOPIC [Suspect]
     Indication: THERMAL BURN
     Dosage: 0.1 %, UNK
     Route: 061

REACTIONS (2)
  - Herpes zoster [Unknown]
  - Off label use [Unknown]
